FAERS Safety Report 9405818 (Version 1)
Quarter: 2013Q3

REPORT INFORMATION
  Report Type: Spontaneous
  Country: US (occurrence: US)
  Receive Date: 20130717
  Receipt Date: 20130717
  Transmission Date: 20140515
  Serious: Yes (Hospitalization)
  Sender: FDA-Public Use
  Company Number: US-GLAXOSMITHKLINE-A1031994A

PATIENT
  Age: 49 Year
  Sex: Male

DRUGS (2)
  1. ARIXTRA [Suspect]
     Indication: ANTICOAGULANT THERAPY
     Dosage: 2.5U PER DAY
     Route: 058
     Dates: start: 201207, end: 20130709
  2. ASPIRIN [Concomitant]

REACTIONS (4)
  - Acute myocardial infarction [Not Recovered/Not Resolved]
  - Stent placement [Not Recovered/Not Resolved]
  - Device occlusion [Not Recovered/Not Resolved]
  - Off label use [Not Recovered/Not Resolved]
